FAERS Safety Report 4645858-6 (Version None)
Quarter: 2005Q2

REPORT INFORMATION
  Report Type: 
  Country: None (occurrence: None)
  Receive Date: 20050425
  Receipt Date: 20050408
  Transmission Date: 20051028
  Serious: Yes (Hospitalization, Other)
  Sender: FDA-Public Use
  Company Number: 2005BI006161

PATIENT
  Age: 31 Year
  Sex: Female
  Weight: 117.9352 kg

DRUGS (9)
  1. AVONEX [Suspect]
     Indication: MULTIPLE SCLEROSIS
     Dosage: 30 UG; QW; IM
     Route: 030
     Dates: start: 20030101, end: 20040101
  2. AVONEX [Suspect]
     Indication: MULTIPLE SCLEROSIS
     Dosage: 30 UG; QW; IM
     Route: 030
     Dates: start: 20040101
  3. LEXAPRO [Concomitant]
  4. SYNTHROID [Concomitant]
  5. QUININE SULFATE [Concomitant]
  6. BACLOFEN [Concomitant]
  7. DEXEDRINE [Concomitant]
  8. TRAZODONE HCL [Concomitant]
  9. PREDNISONE [Concomitant]

REACTIONS (13)
  - BLOOD PRESSURE INCREASED [None]
  - DEPRESSION [None]
  - DIABETES INSIPIDUS [None]
  - HEMIANOPIA [None]
  - HYPOPITUITARISM [None]
  - INCONTINENCE [None]
  - MULTIPLE SCLEROSIS [None]
  - MYALGIA [None]
  - OPTIC DISCS BLURRED [None]
  - PITUITARY HAEMORRHAGE [None]
  - PUPILLARY REFLEX IMPAIRED [None]
  - SLEEP DISORDER [None]
  - WEIGHT DECREASED [None]
